FAERS Safety Report 10027051 (Version 1)
Quarter: 2014Q1

REPORT INFORMATION
  Report Type: Spontaneous
  Country: US (occurrence: US)
  Receive Date: 20140321
  Receipt Date: 20140321
  Transmission Date: 20141002
  Serious: No
  Sender: FDA-Public Use
  Company Number: US-009507513-1403USA001601

PATIENT
  Age: 38 Year
  Sex: Female

DRUGS (5)
  1. CORICIDIN HBP COLD AND FLU [Suspect]
     Indication: NASOPHARYNGITIS
     Dosage: UNK UNK, UNKNOWN
     Route: 048
  2. CORICIDIN HBP COLD AND FLU [Suspect]
     Indication: SINUS CONGESTION
  3. CORICIDIN HBP COLD AND FLU [Suspect]
     Indication: COUGH
  4. CORICIDIN HBP COLD AND FLU [Suspect]
     Indication: PAIN
  5. CORICIDIN HBP COLD AND FLU [Suspect]
     Indication: PYREXIA

REACTIONS (1)
  - Drug ineffective [Unknown]
